FAERS Safety Report 7598041-9 (Version None)
Quarter: 2011Q3

REPORT INFORMATION
  Report Type: 
  Country: None (occurrence: None)
  Receive Date: 20110708
  Receipt Date: 20110705
  Transmission Date: 20111222
  Serious: Yes (Death)
  Sender: FDA-Public Use
  Company Number: US-CEPHALON-2011002556

PATIENT
  Sex: Male
  Weight: 84 kg

DRUGS (9)
  1. FLOMAX [Concomitant]
  2. COUMADIN [Concomitant]
  3. LESCOL [Concomitant]
  4. ASPIRIN [Concomitant]
  5. AVODART [Concomitant]
  6. LANOXIN [Concomitant]
  7. TREANDA [Suspect]
     Indication: NON-HODGKIN'S LYMPHOMA
     Route: 042
     Dates: start: 20110505, end: 20110506
  8. METOPROLOL TARTRATE [Concomitant]
  9. RITUXAN [Concomitant]
     Indication: NON-HODGKIN'S LYMPHOMA
     Dates: start: 20110505, end: 20110505

REACTIONS (4)
  - CYANOSIS [None]
  - DYSPNOEA [None]
  - COUGH [None]
  - CARDIAC DISORDER [None]
